FAERS Safety Report 25639511 (Version 1)
Quarter: 2025Q3

REPORT INFORMATION
  Report Type: Spontaneous
  Country: US (occurrence: US)
  Receive Date: 20250804
  Receipt Date: 20250804
  Transmission Date: 20251020
  Serious: No
  Sender: BAYER HEALTHCARE PHARMACEUTICALS INC.
  Company Number: US-BAYER-2025A101770

PATIENT

DRUGS (2)
  1. GADOBUTROL [Suspect]
     Active Substance: GADOBUTROL
     Dates: start: 20250602, end: 20250602
  2. PREDNISONE [Concomitant]
     Active Substance: PREDNISONE
     Indication: Premedication

REACTIONS (1)
  - Throat irritation [None]

NARRATIVE: CASE EVENT DATE: 20250602
